FAERS Safety Report 25415372 (Version 1)
Quarter: 2025Q2

REPORT INFORMATION
  Report Type: Spontaneous
  Country: RU (occurrence: RU)
  Receive Date: 20250610
  Receipt Date: 20250610
  Transmission Date: 20250717
  Serious: Yes (Other)
  Sender: GILEAD
  Company Number: RU-GILEAD-2025-0715376

PATIENT
  Sex: Male

DRUGS (1)
  1. EPCLUSA [Suspect]
     Active Substance: SOFOSBUVIR\VELPATASVIR
     Indication: Chronic hepatitis C
     Route: 065

REACTIONS (6)
  - Hepatitis C [Unknown]
  - Hepatic cirrhosis [Not Recovered/Not Resolved]
  - Hepatic encephalopathy [Unknown]
  - Portal hypertension [Unknown]
  - Splenomegaly [Unknown]
  - Drug ineffective [Not Recovered/Not Resolved]
